FAERS Safety Report 10082872 (Version 1)
Quarter: 2014Q2

REPORT INFORMATION
  Report Type: Spontaneous
  Country: DE (occurrence: DE)
  Receive Date: 20140416
  Receipt Date: 20140416
  Transmission Date: 20141212
  Serious: Yes (Other)
  Sender: FDA-Public Use
  Company Number: GXKR2014DE001625

PATIENT
  Age: 70 Year
  Sex: Male

DRUGS (1)
  1. VALSARTAN [Suspect]
     Route: 048

REACTIONS (3)
  - Neuritis [Unknown]
  - Myalgia [Unknown]
  - Fatigue [Unknown]
